FAERS Safety Report 8229164-9 (Version None)
Quarter: 2012Q1

REPORT INFORMATION
  Report Type: 
  Country: None (occurrence: None)
  Receive Date: 20120322
  Receipt Date: 20120314
  Transmission Date: 20120608
  Serious: Yes (Other)
  Sender: FDA-Public Use
  Company Number: US-JNJFOC-20120307108

PATIENT

DRUGS (1)
  1. REMICADE [Suspect]
     Indication: PRODUCT USED FOR UNKNOWN INDICATION
     Route: 042

REACTIONS (6)
  - COGNITIVE DISORDER [None]
  - FOOD ALLERGY [None]
  - MEMORY IMPAIRMENT [None]
  - PSORIASIS [None]
  - HEADACHE [None]
  - MOBILITY DECREASED [None]
